FAERS Safety Report 25333714 (Version 1)
Quarter: 2025Q2

REPORT INFORMATION
  Report Type: Spontaneous
  Country: US (occurrence: US)
  Receive Date: 20250520
  Receipt Date: 20250520
  Transmission Date: 20250716
  Serious: No
  Sender: ROCHE
  Company Number: US-ROCHE-10000284098

PATIENT
  Sex: Female

DRUGS (2)
  1. ACTEMRA ACTPEN [Suspect]
     Active Substance: TOCILIZUMAB
     Indication: Rheumatoid arthritis
     Dosage: 162 MG/0.9 ML
     Route: 058
     Dates: start: 202501
  2. SIMPONI [Concomitant]
     Active Substance: GOLIMUMAB

REACTIONS (5)
  - Diverticulitis [Unknown]
  - Pain [Unknown]
  - Ill-defined disorder [Unknown]
  - Gait disturbance [Unknown]
  - Anxiety [Unknown]
